FAERS Safety Report 7996010-8 (Version None)
Quarter: 2011Q4

REPORT INFORMATION
  Report Type: 
  Country: None (occurrence: None)
  Receive Date: 20111220
  Receipt Date: 20111206
  Transmission Date: 20120403
  Serious: Yes (Other)
  Sender: FDA-Public Use
  Company Number: PHHO2007MX09433

PATIENT
  Sex: Female

DRUGS (5)
  1. PREXIGE [Suspect]
     Indication: ANALGESIC THERAPY
     Dosage: 100MG PER DAY
  2. ACETAMINOPHEN W/ CODEINE [Concomitant]
     Indication: ANALGESIC THERAPY
  3. DILTIAZEM HCL [Concomitant]
     Indication: CARDIAC DISORDER
  4. ZOLEDRONOC ACID [Suspect]
     Indication: OSTEOPOROSIS
     Dosage: 5MG/100ML
     Route: 042
     Dates: start: 20070530
  5. ISOSORBIDE DINITRATE [Concomitant]
     Indication: CARDIAC DISORDER

REACTIONS (6)
  - SYNCOPE [None]
  - ABDOMINAL PAIN [None]
  - NAUSEA [None]
  - PYREXIA [None]
  - BONE PAIN [None]
  - DIARRHOEA [None]
